FAERS Safety Report 25048759 (Version 1)
Quarter: 2025Q1

REPORT INFORMATION
  Report Type: Spontaneous
  Country: US (occurrence: US)
  Receive Date: 20250307
  Receipt Date: 20250307
  Transmission Date: 20250409
  Serious: No
  Sender: SAMSUNG BIOEPIS
  Company Number: US-SAMSUNG BIOEPIS-SB-2024-10260

PATIENT
  Age: 78 Year
  Sex: Male
  Weight: 82.55 kg

DRUGS (1)
  1. HADLIMA [Suspect]
     Active Substance: ADALIMUMAB-BWWD
     Indication: Crohn^s disease
     Dosage: 40MG/0.4ML;
     Route: 058
     Dates: start: 20240322

REACTIONS (4)
  - Injection site bruising [Not Recovered/Not Resolved]
  - Device issue [Unknown]
  - Product administered at inappropriate site [Unknown]
  - Off label use [Unknown]

NARRATIVE: CASE EVENT DATE: 20240322
